FAERS Safety Report 12964489 (Version 5)
Quarter: 2016Q4

REPORT INFORMATION
  Report Type: Report from Study
  Country: DE (occurrence: DE)
  Receive Date: 20161122
  Receipt Date: 20161229
  Transmission Date: 20170207
  Serious: Yes (Life-Threatening, Hospitalization)
  Sender: FDA-Public Use
  Company Number: DE-PFIZER INC-2016537588

PATIENT
  Age: 75 Year
  Sex: Male
  Weight: 77 kg

DRUGS (8)
  1. POTASSIUM CHLORIDE. [Concomitant]
     Active Substance: POTASSIUM CHLORIDE
     Dosage: AS NEEDED
     Route: 042
     Dates: start: 20161107, end: 20161202
  2. IDARUBICIN HCL [Suspect]
     Active Substance: IDARUBICIN HYDROCHLORIDE
     Indication: ACUTE MYELOID LEUKAEMIA
     Dosage: 22.8 MG, DAILY, CYCLIC
     Route: 042
     Dates: start: 20161028, end: 20161030
  3. ATRA [Suspect]
     Active Substance: TRETINOIN
     Indication: ACUTE MYELOID LEUKAEMIA
     Dosage: 90 MG, DAILY, CYCLIC
     Route: 048
     Dates: start: 20161102, end: 20161104
  4. ETOPOSIDE. [Suspect]
     Active Substance: ETOPOSIDE
     Indication: ACUTE MYELOID LEUKAEMIA
     Dosage: 190 MG, DAILY, CYCLIC
     Route: 042
     Dates: start: 20161028, end: 20161030
  5. POTASSIUM CHLORIDE. [Concomitant]
     Active Substance: POTASSIUM CHLORIDE
     Indication: HYPOKALAEMIA
     Dosage: AS NEEDED
     Route: 048
     Dates: start: 20161107, end: 20161202
  6. GEMTUZUMAB OZOGAMICIN [Suspect]
     Active Substance: GEMTUZUMAB OZOGAMICIN
     Indication: ACUTE MYELOID LEUKAEMIA
     Dosage: 5.7 MG, DAILY, CYCLIC
     Route: 042
     Dates: start: 20161028, end: 20161028
  7. ATRA [Suspect]
     Active Substance: TRETINOIN
     Dosage: 30 MG, DAILY, CYCLIC
     Route: 048
     Dates: start: 20161105, end: 20161115
  8. CYTARABINE. [Suspect]
     Active Substance: CYTARABINE
     Indication: ACUTE MYELOID LEUKAEMIA
     Dosage: 190 MG, DAILY, CYCLIC
     Route: 042
     Dates: start: 20161028, end: 20161103

REACTIONS (1)
  - Neutropenic colitis [Recovered/Resolved]

NARRATIVE: CASE EVENT DATE: 20161109
